FAERS Safety Report 19157796 (Version 1)
Quarter: 2021Q2

REPORT INFORMATION
  Report Type: Spontaneous
  Country: US (occurrence: US)
  Receive Date: 20210419
  Receipt Date: 20210419
  Transmission Date: 20210717
  Serious: Yes (Life-Threatening, Hospitalization, Disabling, Other)
  Sender: FDA-Public Use
  Company Number: None

PATIENT
  Age: 54 Year
  Sex: Female
  Weight: 97.52 kg

DRUGS (7)
  1. COENZYME Q10 [Concomitant]
     Active Substance: DIETARY SUPPLEMENT\UBIDECARENONE
  2. ALBUTEROL. [Concomitant]
     Active Substance: ALBUTEROL
  3. LEVOFLOXACIN. [Suspect]
     Active Substance: LEVOFLOXACIN
     Indication: GASTRIC DISORDER
     Dosage: ?          QUANTITY:1 DF DOSAGE FORM;?
     Route: 048
     Dates: start: 20191222, end: 20191222
  4. TYLENOL [Concomitant]
     Active Substance: ACETAMINOPHEN
  5. DILTIAZEM. [Concomitant]
     Active Substance: DILTIAZEM
  6. VIT D [Concomitant]
     Active Substance: VITAMIN D NOS
  7. LEVOFLOXACIN. [Suspect]
     Active Substance: LEVOFLOXACIN
     Indication: BACTERIAL INFECTION
     Dosage: ?          QUANTITY:1 DF DOSAGE FORM;?
     Route: 048
     Dates: start: 20191222, end: 20191222

REACTIONS (10)
  - Choking [None]
  - Musculoskeletal discomfort [None]
  - Nervous system disorder [None]
  - Blood pressure increased [None]
  - Cardiac disorder [None]
  - Heart rate increased [None]
  - Pain in extremity [None]
  - Gait inability [None]
  - Product use complaint [None]
  - Tendon discomfort [None]

NARRATIVE: CASE EVENT DATE: 20191222
